FAERS Safety Report 4663715-6 (Version None)
Quarter: 2005Q2

REPORT INFORMATION
  Report Type: 
  Country: None (occurrence: None)
  Receive Date: 20050516
  Receipt Date: 20041222
  Transmission Date: 20051028
  Serious: Yes (Other)
  Sender: FDA-Public Use
  Company Number: 2004237751US

PATIENT
  Age: 56 Year
  Sex: Female

DRUGS (1)
  1. DAYPRO [Suspect]
     Indication: OSTEOARTHRITIS
     Dosage: (2 IN 1 D), ORAL
     Route: 048
     Dates: start: 19900101, end: 19990101

REACTIONS (9)
  - ANGIOPATHY [None]
  - BARRETT'S OESOPHAGUS [None]
  - CHEST PAIN [None]
  - GASTROOESOPHAGEAL REFLUX DISEASE [None]
  - HAEMORRHAGE [None]
  - HIATUS HERNIA [None]
  - OESOPHAGEAL ULCER [None]
  - PANCREATITIS [None]
  - WEIGHT DECREASED [None]
